FAERS Safety Report 13798468 (Version 1)
Quarter: 2017Q3

REPORT INFORMATION
  Report Type: Spontaneous
  Country: US (occurrence: US)
  Receive Date: 20170727
  Receipt Date: 20170727
  Transmission Date: 20171127
  Serious: Yes (Other)
  Sender: FDA-Public Use
  Company Number: None

PATIENT
  Age: 60 Year
  Sex: Male
  Weight: 79.45 kg

DRUGS (2)
  1. VENLAFAXINE [Suspect]
     Active Substance: VENLAFAXINE HYDROCHLORIDE
     Indication: SOMNOLENCE
     Route: 048
     Dates: start: 20170510, end: 20170515
  2. VENLAFAXINE [Suspect]
     Active Substance: VENLAFAXINE HYDROCHLORIDE
     Indication: CONVULSIVE THRESHOLD LOWERED
     Route: 048
     Dates: start: 20170510, end: 20170515

REACTIONS (5)
  - Sluggishness [None]
  - Anxiety [None]
  - Nausea [None]
  - Irritability [None]
  - Suicidal ideation [None]

NARRATIVE: CASE EVENT DATE: 20170509
